FAERS Safety Report 7733066-1 (Version None)
Quarter: 2011Q3

REPORT INFORMATION
  Report Type: 
  Country: None (occurrence: None)
  Receive Date: 20110907
  Receipt Date: 20110901
  Transmission Date: 20111222
  Serious: No
  Sender: FDA-Public Use
  Company Number: US-PFIZER INC-2011204396

PATIENT
  Sex: Male

DRUGS (2)
  1. DILANTIN [Suspect]
     Dosage: 300 MG, 2X/DAY
     Dates: start: 19780101
  2. PHENYTOIN SODIUM [Suspect]
     Dosage: UNK

REACTIONS (1)
  - MIDDLE INSOMNIA [None]
